FAERS Safety Report 9465868 (Version 7)
Quarter: 2014Q1

REPORT INFORMATION
  Report Type: Spontaneous
  Country: AU (occurrence: AU)
  Receive Date: 20130820
  Receipt Date: 20140227
  Transmission Date: 20141002
  Serious: Yes (Disabling, Other)
  Sender: FDA-Public Use
  Company Number: AU-AMGEN-AUSSP2013051676

PATIENT
  Age: 84 Year
  Sex: Male

DRUGS (11)
  1. XGEVA [Suspect]
     Indication: METASTASES TO BONE
     Dosage: 120 MG, Q4WK
     Route: 058
     Dates: start: 20130416
  2. XGEVA [Suspect]
     Indication: PROSTATE CANCER
  3. ZOLADEX                            /00732101/ [Concomitant]
     Dosage: UNK UNK, Q3MO
  4. NORVASC [Concomitant]
     Indication: HYPERTENSION
  5. KARVEA [Concomitant]
     Indication: HYPERTENSION
     Dosage: 300 MG, UNK
  6. LANTUS [Concomitant]
     Indication: DIABETES MELLITUS
  7. ACTRAPID [Concomitant]
     Indication: DIABETES MELLITUS
  8. LOSEC                              /00661201/ [Concomitant]
     Indication: GASTROOESOPHAGEAL REFLUX DISEASE
  9. CALCIUM [Concomitant]
     Indication: OSTEOPOROSIS
     Dosage: UNK UNK, QD
  10. VITAMIN D                          /00107901/ [Concomitant]
     Indication: OSTEOPOROSIS
     Dosage: UNK UNK, QD
  11. COSUDEX [Concomitant]

REACTIONS (19)
  - Stress fracture [Recovered/Resolved]
  - Sleep disorder due to a general medical condition [Not Recovered/Not Resolved]
  - Pain in extremity [Recovered/Resolved]
  - Pain [Not Recovered/Not Resolved]
  - Foot fracture [Recovered/Resolved]
  - Arthralgia [Not Recovered/Not Resolved]
  - Mobility decreased [Not Recovered/Not Resolved]
  - Osteoporosis [Unknown]
  - Blood pressure abnormal [Unknown]
  - Restless legs syndrome [Recovering/Resolving]
  - Malaise [Unknown]
  - Blood glucose increased [Unknown]
  - Feeling abnormal [Unknown]
  - Arthritis [Unknown]
  - Local swelling [Unknown]
  - Hot flush [Not Recovered/Not Resolved]
  - Decreased appetite [Not Recovered/Not Resolved]
  - Insomnia [Not Recovered/Not Resolved]
  - Fatigue [Not Recovered/Not Resolved]
